FAERS Safety Report 10252477 (Version 2)
Quarter: 2014Q3

REPORT INFORMATION
  Report Type: Spontaneous
  Country: US (occurrence: US)
  Receive Date: 20140623
  Receipt Date: 20140829
  Transmission Date: 20150326
  Serious: Yes (Other)
  Sender: FDA-Public Use
  Company Number: US-PFIZER INC-2014167791

PATIENT
  Age: 71 Year
  Sex: Female
  Weight: 58.1 kg

DRUGS (4)
  1. TOPROL XL [Concomitant]
     Active Substance: METOPROLOL SUCCINATE
     Indication: HYPERTENSION
     Dosage: 50 MG, DAILY
  2. COLESTIPOL [Concomitant]
     Active Substance: COLESTIPOL
     Indication: BLOOD CHOLESTEROL ABNORMAL
     Dosage: UNK, 2X/DAY
  3. CORTISONE [Suspect]
     Active Substance: CORTISONE\HYDROCORTISONE
     Indication: ARTHRITIS
     Dosage: UNK
     Dates: start: 20140602
  4. LOSARTAN [Concomitant]
     Active Substance: LOSARTAN
     Indication: HYPERTENSION
     Dosage: 75 MG, DAILY

REACTIONS (1)
  - Coeliac disease [Recovered/Resolved]

NARRATIVE: CASE EVENT DATE: 20140602
